FAERS Safety Report 23672769 (Version 1)
Quarter: 2024Q1

REPORT INFORMATION
  Report Type: Spontaneous
  Country: US (occurrence: None)
  Receive Date: 20240325
  Receipt Date: 20240325
  Transmission Date: 20240410
  Serious: Yes (Disabling)
  Sender: FDA-Public Use
  Company Number: None

PATIENT
  Age: 65 Year
  Sex: Female
  Weight: 72 kg

DRUGS (23)
  1. AIMOVIG [Suspect]
     Active Substance: ERENUMAB-AOOE
     Indication: Migraine
     Dosage: OTHER QUANTITY : 1 INJECTION(S);?OTHER FREQUENCY : MONTHLY;?
     Route: 058
     Dates: start: 20240310, end: 20240310
  2. LEVOTHYROXINE SODIUM [Concomitant]
     Active Substance: LEVOTHYROXINE SODIUM
  3. NURTEC ODT [Concomitant]
     Active Substance: RIMEGEPANT SULFATE
  4. VENLAFAXINE [Concomitant]
     Active Substance: VENLAFAXINE HYDROCHLORIDE
  5. IBUPROFEN [Concomitant]
     Active Substance: IBUPROFEN
  6. COLLAGEN [Concomitant]
     Active Substance: COLLAGEN
  7. VITAMIN C [Concomitant]
     Active Substance: ASCORBIC ACID
  8. BIOTIN [Concomitant]
     Active Substance: BIOTIN
  9. HYDROLYZED COLLAGEN [Concomitant]
  10. VITAMIN D3 [Concomitant]
     Active Substance: CHOLECALCIFEROL
  11. KRILL OIL [Concomitant]
     Active Substance: DIETARY SUPPLEMENT\KRILL OIL
  12. METHYL GUARD PLUS [Concomitant]
  13. RIBOFLAVIN [Concomitant]
     Active Substance: RIBOFLAVIN
  14. B5 [Concomitant]
  15. FOLATE SODIUM [Concomitant]
     Active Substance: FOLATE SODIUM
  16. MegaQuinone [Concomitant]
  17. JWH-018 [Concomitant]
     Active Substance: JWH-018
  18. K1 [Concomitant]
  19. ZINC [Concomitant]
     Active Substance: PYRITHIONE ZINC\ZINC\ZINC CHLORIDE
  20. MAGNESIUM [Concomitant]
     Active Substance: MAGNESIUM
  21. CHLORPHENIRAMINE MALEATE [Concomitant]
     Active Substance: CHLORPHENIRAMINE MALEATE
  22. DIPHENHYDRAMINE [Concomitant]
     Active Substance: DIPHENHYDRAMINE
  23. ACETAMINOPHEN [Concomitant]
     Active Substance: ACETAMINOPHEN

REACTIONS (7)
  - Nausea [None]
  - Constipation [None]
  - Abdominal distension [None]
  - Vomiting [None]
  - Dyspepsia [None]
  - Retching [None]
  - Loss of consciousness [None]

NARRATIVE: CASE EVENT DATE: 20240311
